FAERS Safety Report 8088236-2 (Version None)
Quarter: 2012Q1

REPORT INFORMATION
  Report Type: 
  Country: None (occurrence: None)
  Receive Date: 20120131
  Receipt Date: 20090413
  Transmission Date: 20120608
  Serious: No
  Sender: FDA-Public Use
  Company Number: 2009BI011494

PATIENT
  Sex: Female

DRUGS (3)
  1. OXYCONTIN [Concomitant]
     Indication: PAIN
  2. AVONEX [Concomitant]
     Indication: MULTIPLE SCLEROSIS
     Route: 030
     Dates: start: 20090101
  3. TYSABRI [Suspect]
     Indication: MULTIPLE SCLEROSIS
     Route: 042
     Dates: start: 20090129

REACTIONS (15)
  - ARTHRALGIA [None]
  - PULMONARY CONGESTION [None]
  - DEPRESSION [None]
  - PNEUMONIA [None]
  - FATIGUE [None]
  - URINARY TRACT INFECTION [None]
  - PAIN IN EXTREMITY [None]
  - COUGH [None]
  - WHEEZING [None]
  - AMNESIA [None]
  - NASOPHARYNGITIS [None]
  - MULTIPLE SCLEROSIS RELAPSE [None]
  - ANXIETY [None]
  - SINUS DISORDER [None]
  - RESPIRATORY TRACT CONGESTION [None]
